FAERS Safety Report 8276068-1 (Version None)
Quarter: 2012Q2

REPORT INFORMATION
  Report Type: 
  Country: None (occurrence: None)
  Receive Date: 20120405
  Receipt Date: 20120327
  Transmission Date: 20120825
  Serious: Yes (Other)
  Sender: FDA-Public Use
  Company Number: ACO_29852_2012

PATIENT
  Age: 56 Year
  Sex: Female
  Weight: 104.3 kg

DRUGS (12)
  1. ZOLPIDEM [Concomitant]
  2. DONEPEZIL HCL [Concomitant]
  3. GILENYA [Concomitant]
  4. AMANTADINE HCL (AMANTADINE HYDROCHLORIDE) [Concomitant]
  5. AMPYRA [Suspect]
     Indication: GAIT DISTURBANCE
     Dosage: 10 MG, BID, ORAL
     Route: 048
     Dates: end: 20110701
  6. AMPYRA [Suspect]
     Indication: GAIT DISTURBANCE
     Dosage: 10 MG, BID, ORAL
     Route: 048
     Dates: start: 20100601
  7. NUVIGIL [Suspect]
     Indication: PRODUCT USED FOR UNKNOWN INDICATION
     Dosage: 250 MG
  8. BACLOFEN [Concomitant]
  9. BONIVA [Concomitant]
  10. TRIAMTERENE (TRIAMTERENE) [Concomitant]
  11. AMITRIPTYLINE /00002202/ (AMITRIPTYLINE HYDROCHLORIDE) [Concomitant]
  12. VENLAFAXINE [Concomitant]

REACTIONS (8)
  - DISEASE PROGRESSION [None]
  - GAIT DISTURBANCE [None]
  - INSOMNIA [None]
  - THERAPY CESSATION [None]
  - COMA [None]
  - FALL [None]
  - MULTIPLE SCLEROSIS [None]
  - CONVULSION [None]
